FAERS Safety Report 6300419-8 (Version None)
Quarter: 2009Q3

REPORT INFORMATION
  Report Type: 
  Country: None (occurrence: None)
  Receive Date: 20090803
  Receipt Date: 20090720
  Transmission Date: 20100115
  Serious: Yes (Hospitalization, Other)
  Sender: FDA-Public Use
  Company Number: ADR10672009

PATIENT
  Age: 81 Year
  Sex: Male

DRUGS (11)
  1. AMLODIPINE [Suspect]
  2. ATENOLOL [Concomitant]
  3. ASPIRIN [Concomitant]
  4. ATORVASTATIN CALCIUM [Concomitant]
  5. ISOSORBIDE [Concomitant]
  6. MONONIITRATE [Concomitant]
  7. QUININE [Concomitant]
  8. LISINOPRIL [Concomitant]
  9. OLMESARTAN MEDOXOMIL [Concomitant]
  10. MEDOXOMIL [Concomitant]
  11. OMEPRAZOLE [Concomitant]

REACTIONS (16)
  - ARRHYTHMIA [None]
  - ATRIAL FLUTTER [None]
  - BALANCE DISORDER [None]
  - BRADYCARDIA [None]
  - DIZZINESS [None]
  - FALL [None]
  - HYPOCALCAEMIA [None]
  - HYPOKALAEMIA [None]
  - HYPOMAGNESAEMIA [None]
  - HYPOTENSION [None]
  - MUSCLE SPASMS [None]
  - NAUSEA [None]
  - PARAESTHESIA [None]
  - TETANY [None]
  - URINARY TRACT INFECTION [None]
  - VOMITING [None]
